FAERS Safety Report 6411089-2 (Version None)
Quarter: 2009Q4

REPORT INFORMATION
  Report Type: 
  Country: None (occurrence: None)
  Receive Date: 20091020
  Receipt Date: 20091007
  Transmission Date: 20100525
  Serious: Yes (Disabling)
  Sender: FDA-Public Use
  Company Number: 1-20394299

PATIENT
  Sex: Female

DRUGS (1)
  1. METOCLOPRAMIDE TABLET 5 MG [Suspect]
     Indication: OESOPHAGEAL INJURY
     Dosage: ORAL
     Route: 048
     Dates: start: 19910101, end: 20010901

REACTIONS (5)
  - DEFORMITY [None]
  - INJURY [None]
  - MENTAL DISORDER [None]
  - PAIN [None]
  - TARDIVE DYSKINESIA [None]
